FAERS Safety Report 7568418-6 (Version None)
Quarter: 2011Q2

REPORT INFORMATION
  Report Type: 
  Country: None (occurrence: None)
  Receive Date: 20110617
  Receipt Date: 20110606
  Transmission Date: 20111010
  Serious: Yes (Other)
  Sender: FDA-Public Use
  Company Number: FK201101141

PATIENT
  Age: 11 Year
  Sex: Male
  Weight: 35.7 kg

DRUGS (6)
  1. CHOLINERGIC RECEPTOR AGONISTS [Suspect]
     Indication: PRODUCT USED FOR UNKNOWN INDICATION
  2. ACETYLCHOLINESTERASE INHIBITOR [Suspect]
     Indication: PRODUCT USED FOR UNKNOWN INDICATION
  3. ISOFLURANE [Concomitant]
  4. ONDANSETRON [Suspect]
     Indication: PRODUCT USED FOR UNKNOWN INDICATION
  5. THIOPENTAL SODIUM [Concomitant]
  6. PANCURONIUM BROMIDE [Concomitant]

REACTIONS (1)
  - TORSADE DE POINTES [None]
